FAERS Safety Report 7427384-4 (Version None)
Quarter: 2011Q2

REPORT INFORMATION
  Report Type: 
  Country: None (occurrence: None)
  Receive Date: 20110420
  Receipt Date: 20110405
  Transmission Date: 20111010
  Serious: Yes (Death, Life-Threatening)
  Sender: FDA-Public Use
  Company Number: FR-PFIZER INC-2008037285

PATIENT
  Age: 87 Year
  Sex: Female

DRUGS (13)
  1. EFFEXOR [Suspect]
     Route: 048
     Dates: end: 20080112
  2. SPIRONOLACTONE [Suspect]
     Route: 048
     Dates: end: 20080112
  3. ARIXTRA [Suspect]
     Route: 058
     Dates: start: 20080108, end: 20080110
  4. MOPRAL [Suspect]
     Route: 048
  5. LASIX [Concomitant]
  6. KARDEGIC [Suspect]
     Route: 048
     Dates: start: 20080108, end: 20080111
  7. KERLONE [Suspect]
     Route: 048
     Dates: end: 20080112
  8. TRINIPATCH [Suspect]
     Route: 062
     Dates: end: 20080112
  9. LOVENOX [Concomitant]
     Dates: start: 20080102, end: 20080107
  10. AMLODIPINE BESYLATE [Suspect]
     Route: 048
     Dates: end: 20080112
  11. PREVISCAN [Suspect]
     Route: 048
     Dates: start: 20080108, end: 20080111
  12. TAHOR [Suspect]
     Route: 048
  13. PLAVIX [Suspect]
     Route: 048
     Dates: start: 20071231, end: 20080111

REACTIONS (2)
  - ANAEMIA [None]
  - MUSCLE HAEMORRHAGE [None]
